FAERS Safety Report 26013076 (Version 1)
Quarter: 2025Q4

REPORT INFORMATION
  Report Type: Spontaneous
  Country: US (occurrence: US)
  Receive Date: 20251107
  Receipt Date: 20251107
  Transmission Date: 20260117
  Serious: No
  Sender: JAZZ
  Company Number: US-JAZZ PHARMACEUTICALS-2025-US-011466

PATIENT
  Age: 61 Year
  Sex: Female

DRUGS (2)
  1. RYLAZE [Suspect]
     Active Substance: ASPARAGINASE ERWINIA CHRYSANTHEMI (RECOMBINANT)-RYWN
     Indication: Acute myeloid leukaemia refractory
     Dosage: UNK
  2. VENETOCLAX [Concomitant]
     Active Substance: VENETOCLAX
     Dosage: UNK

REACTIONS (1)
  - Off label use [Unknown]
